FAERS Safety Report 24928547 (Version 1)
Quarter: 2025Q1

REPORT INFORMATION
  Report Type: Spontaneous
  Country: US (occurrence: US)
  Receive Date: 20250205
  Receipt Date: 20250205
  Transmission Date: 20250409
  Serious: Yes (Other)
  Sender: PFIZER
  Company Number: US-PFIZER INC-202500024738

PATIENT
  Age: 62 Year
  Sex: Male

DRUGS (11)
  1. XELJANZ XR [Suspect]
     Active Substance: TOFACITINIB CITRATE
     Indication: Rheumatoid arthritis
     Dosage: TAKE 1 TABLET BY MOUTH DAILY
     Route: 048
     Dates: start: 202501
  2. PREDNISONE [Suspect]
     Active Substance: PREDNISONE
     Dosage: 10MG TWICE DAILY
  3. PREDNISONE [Suspect]
     Active Substance: PREDNISONE
  4. TYLENOL [Concomitant]
     Active Substance: ACETAMINOPHEN
  5. CLARITHROMYCIN [Concomitant]
     Active Substance: CLARITHROMYCIN
  6. CALCIUM\ERGOCALCIFEROL [Concomitant]
     Active Substance: CALCIUM\ERGOCALCIFEROL
  7. ZYRTEC [Concomitant]
     Active Substance: CETIRIZINE HYDROCHLORIDE
  8. ZINC [Concomitant]
     Active Substance: ZINC
  9. MAGNESIUM [Concomitant]
     Active Substance: MAGNESIUM
  10. MUCINEX D [Concomitant]
     Active Substance: GUAIFENESIN\PSEUDOEPHEDRINE HYDROCHLORIDE
  11. RINVOQ [Suspect]
     Active Substance: UPADACITINIB

REACTIONS (6)
  - Rheumatoid arthritis [Unknown]
  - Musculoskeletal stiffness [Not Recovered/Not Resolved]
  - Muscle spasms [Not Recovered/Not Resolved]
  - Muscle tightness [Not Recovered/Not Resolved]
  - Pain [Not Recovered/Not Resolved]
  - Myalgia [Not Recovered/Not Resolved]
